FAERS Safety Report 15012265 (Version 1)
Quarter: 2018Q2

REPORT INFORMATION
  Report Type: Spontaneous
  Country: US (occurrence: US)
  Receive Date: 20180614
  Receipt Date: 20180614
  Transmission Date: 20180711
  Serious: Yes (Death)
  Sender: FDA-Public Use
  Company Number: US-PFIZER INC-2018239000

PATIENT
  Age: 71 Year
  Sex: Male

DRUGS (1)
  1. XALKORI [Suspect]
     Active Substance: CRIZOTINIB
     Indication: SMALL CELL LUNG CANCER METASTATIC
     Dosage: 250 MG, TWICE DAILY
     Dates: start: 201801

REACTIONS (3)
  - Ulcer haemorrhage [Fatal]
  - Respiratory disorder [Fatal]
  - Blood pressure decreased [Fatal]
